FAERS Safety Report 17749845 (Version 1)
Quarter: 2020Q2

REPORT INFORMATION
  Report Type: Spontaneous
  Country: US (occurrence: US)
  Receive Date: 20200505
  Receipt Date: 20200505
  Transmission Date: 20200714
  Serious: Yes (Hospitalization)
  Sender: FDA-Public Use
  Company Number: None

PATIENT
  Age: 62 Year
  Sex: Male

DRUGS (46)
  1. ACETYLCYST [Concomitant]
  2. FOLIC ACID. [Concomitant]
     Active Substance: FOLIC ACID
  3. MONTELUKAST [Concomitant]
     Active Substance: MONTELUKAST SODIUM
  4. MYCOPHENOLIC [Concomitant]
     Active Substance: MYCOPHENOLIC ACID
  5. PANTOPRAZOLE [Concomitant]
     Active Substance: PANTOPRAZOLE
  6. XARELTO [Concomitant]
     Active Substance: RIVAROXABAN
  7. ELIQUIS [Concomitant]
     Active Substance: APIXABAN
  8. AMIKACIN. [Concomitant]
     Active Substance: AMIKACIN
  9. AZITHROMYCIN ANHYDROUS. [Concomitant]
     Active Substance: AZITHROMYCIN ANHYDROUS
  10. METOPROL TAR [Concomitant]
  11. ESCITALOPRAM [Concomitant]
     Active Substance: ESCITALOPRAM OXALATE
  12. FLUTICASONE. [Concomitant]
     Active Substance: FLUTICASONE
  13. OSELTAMIVIR [Concomitant]
     Active Substance: OSELTAMIVIR
  14. VIRT-PHOS [Concomitant]
  15. CELLCEPT [Concomitant]
     Active Substance: MYCOPHENOLATE MOFETIL\MYCOPHENOLATE MOFETIL HYDROCHLORIDE
  16. IPRATROPIUM [Concomitant]
     Active Substance: IPRATROPIUM
  17. RAMELTEON [Concomitant]
     Active Substance: RAMELTEON
  18. TRAMADOL HCL [Concomitant]
     Active Substance: TRAMADOL HYDROCHLORIDE
  19. VITAMIN D [Concomitant]
     Active Substance: VITAMIN D NOS
  20. METOCLOPRAM [Concomitant]
     Active Substance: METOCLOPRAMIDE
  21. FEROSUL [Concomitant]
     Active Substance: FERROUS SULFATE
  22. FLORANEX [Concomitant]
     Active Substance: LACTOBACILLUS ACIDOPHILUS\LACTOBACILLUS DELBRUECKII SUBSP. BULGARICUS
  23. FORTEO [Suspect]
     Active Substance: TERIPARATIDE
     Indication: OSTEOPOROTIC FRACTURE
     Dosage: ?          OTHER STRENGTH:600/2.4 UG/ML;?
     Route: 058
     Dates: start: 20180217
  24. METFORMIN [Concomitant]
     Active Substance: METFORMIN HYDROCHLORIDE
  25. MULTI VITAMIN [Concomitant]
     Active Substance: VITAMINS
  26. NYSTATIN. [Concomitant]
     Active Substance: NYSTATIN
  27. PREDNISONE. [Concomitant]
     Active Substance: PREDNISONE
  28. CETIRIZINE [Concomitant]
     Active Substance: CETIRIZINE HYDROCHLORIDE
  29. ACETAMIN [Concomitant]
     Active Substance: ACETAMINOPHEN
  30. ASPIRIN. [Concomitant]
     Active Substance: ASPIRIN
  31. FINASTERIDE. [Concomitant]
     Active Substance: FINASTERIDE
  32. FUROSEMIDE. [Concomitant]
     Active Substance: FUROSEMIDE
  33. GABAPENTIN. [Concomitant]
     Active Substance: GABAPENTIN
  34. LEVOTHYROXIN [Concomitant]
     Active Substance: LEVOTHYROXINE
  35. MI-ACID GAS CHW [Concomitant]
  36. ENOXAPARIN [Concomitant]
     Active Substance: ENOXAPARIN
  37. AMOX/K CLAV [Concomitant]
     Active Substance: AMOXICILLIN\CLAVULANATE POTASSIUM
  38. AMOXICILLIN. [Concomitant]
     Active Substance: AMOXICILLIN
  39. MODAFINIL. [Concomitant]
     Active Substance: MODAFINIL
  40. SMZ/TMP DS [Concomitant]
     Active Substance: SULFAMETHOXAZOLE\TRIMETHOPRIM
  41. CARAFATE [Concomitant]
     Active Substance: SUCRALFATE
  42. ASPIRIN. [Concomitant]
     Active Substance: ASPIRIN
  43. MAG OXIDE [Concomitant]
     Active Substance: MAGNESIUM OXIDE
  44. ROSUVASTATIN. [Concomitant]
     Active Substance: ROSUVASTATIN
  45. TACROLIMUS. [Concomitant]
     Active Substance: TACROLIMUS
  46. VALGANCICLOV [Concomitant]

REACTIONS (1)
  - Hernia [None]

NARRATIVE: CASE EVENT DATE: 20200422
